FAERS Safety Report 7734471-X (Version None)
Quarter: 2011Q3

REPORT INFORMATION
  Report Type: 
  Country: None (occurrence: None)
  Receive Date: 20110901
  Receipt Date: 20110822
  Transmission Date: 20111222
  Serious: Yes (Death, Other)
  Sender: FDA-Public Use
  Company Number: TPA2011A00573

PATIENT
  Age: 63 Year
  Sex: Male
  Weight: 127.0072 kg

DRUGS (7)
  1. MULTIVITAMIN (ASCORBIC ACID, PYRIDOXINE HYDROCHLORIDE, THIAMINE HYDROC [Concomitant]
  2. ASPIRIN [Concomitant]
  3. FLAXSEED OIL (LINUM USITATISSIMUM SEED OIL) (CAPSULES) [Concomitant]
  4. ACTOS [Suspect]
     Indication: TYPE 2 DIABETES MELLITUS
     Dosage: 15 MG, 1 IN 1 D, ORAL 30 MG, 1 IN 1 D, ORAL
     Route: 048
     Dates: start: 20080306, end: 20090724
  5. ACTOS [Suspect]
     Indication: TYPE 2 DIABETES MELLITUS
     Dosage: 15 MG, 1 IN 1 D, ORAL 30 MG, 1 IN 1 D, ORAL
     Route: 048
     Dates: start: 20040517, end: 20080305
  6. VITAMIN D (ERGOCALCIFEROL) (CAPSULES) [Concomitant]
  7. OMEGA-3-ACID ETHYL ESTERS (LOVAZA) [Concomitant]

REACTIONS (7)
  - HYPERTENSION [None]
  - CHEST PAIN [None]
  - BRONCHITIS [None]
  - BLOOD TRIGLYCERIDES INCREASED [None]
  - LOW DENSITY LIPOPROTEIN INCREASED [None]
  - MYOCARDIAL INFARCTION [None]
  - BLOOD GLUCOSE INCREASED [None]
